FAERS Safety Report 23315527 (Version 1)
Quarter: 2023Q4

REPORT INFORMATION
  Report Type: Spontaneous
  Country: US (occurrence: None)
  Receive Date: 20231218
  Receipt Date: 20231218
  Transmission Date: 20240109
  Serious: Yes (Hospitalization)
  Sender: FDA-Public Use
  Company Number: None

PATIENT
  Sex: Female

DRUGS (1)
  1. TRETINOIN [Suspect]
     Active Substance: TRETINOIN
     Indication: Acute promyelocytic leukaemia
     Dosage: 10 MG ORAL??TAKE 5 CAPSULES (50MG) BY MOUTH TWICE DAILY
     Route: 048

REACTIONS (4)
  - Dizziness [None]
  - Headache [None]
  - Nausea [None]
  - Vomiting [None]
